FAERS Safety Report 16653607 (Version 1)
Quarter: 2019Q3

REPORT INFORMATION
  Report Type: Spontaneous
  Country: SA (occurrence: SA)
  Receive Date: 20190731
  Receipt Date: 20190731
  Transmission Date: 20191004
  Serious: Yes (Other)
  Sender: FDA-Public Use
  Company Number: SA-GLAXOSMITHKLINE-SA2019GSK130019

PATIENT
  Age: 1 Year
  Sex: Male

DRUGS (5)
  1. FENISTIL [Concomitant]
     Active Substance: DIMETHINDENE
     Indication: PRODUCT USED FOR UNKNOWN INDICATION
     Dosage: 10 UNK, TID DROP
     Route: 048
     Dates: start: 20190715
  2. PULMICORT TURBUHALER [Concomitant]
     Active Substance: BUDESONIDE
     Indication: BRONCHITIS
     Dosage: 1 ML, QD
     Route: 055
     Dates: start: 20190715
  3. FEVADOL [Concomitant]
     Indication: PYREXIA
     Dosage: 5 ML, PRN
     Route: 048
     Dates: start: 20190715
  4. NORMAL SALINE [Concomitant]
     Active Substance: SODIUM CHLORIDE
     Indication: BRONCHITIS
     Dosage: 2.5 ML, QD
     Route: 055
     Dates: start: 20190715
  5. VENTOLIN [Suspect]
     Active Substance: ALBUTEROL SULFATE
     Indication: BRONCHITIS
     Dosage: UNK
     Route: 055
     Dates: start: 20190715

REACTIONS (2)
  - Measles [Recovered/Resolved]
  - Rash [Recovered/Resolved]

NARRATIVE: CASE EVENT DATE: 20190717
